FAERS Safety Report 25169693 (Version 2)
Quarter: 2025Q2

REPORT INFORMATION
  Report Type: Spontaneous
  Country: US (occurrence: US)
  Receive Date: 20250407
  Receipt Date: 20250416
  Transmission Date: 20250716
  Serious: Yes (Death, Life-Threatening, Hospitalization)
  Sender: TEVA
  Company Number: US-TEVA-VS-3317189

PATIENT
  Age: 70 Year
  Sex: Male

DRUGS (4)
  1. AMIODARONE [Suspect]
     Active Substance: AMIODARONE
     Indication: Ventricular tachycardia
     Route: 065
  2. RUXOLITINIB [Suspect]
     Active Substance: RUXOLITINIB
     Indication: Myocarditis-myositis-myasthenia gravis overlap syndrome
     Route: 065
  3. PEMBROLIZUMAB [Suspect]
     Active Substance: PEMBROLIZUMAB
     Indication: Malignant melanoma
     Route: 065
  4. ABATACEPT [Suspect]
     Active Substance: ABATACEPT
     Indication: Myocarditis-myositis-myasthenia gravis overlap syndrome
     Route: 065

REACTIONS (8)
  - Cardiac disorder [Fatal]
  - Atrioventricular block complete [Unknown]
  - Ejection fraction decreased [Unknown]
  - Atrioventricular block first degree [Unknown]
  - Myocarditis-myositis-myasthenia gravis overlap syndrome [Unknown]
  - Cardiac dysfunction [Unknown]
  - Ventricular tachycardia [Unknown]
  - Drug ineffective [Fatal]
